FAERS Safety Report 25249389 (Version 1)
Quarter: 2025Q2

REPORT INFORMATION
  Report Type: Spontaneous
  Country: CO (occurrence: CO)
  Receive Date: 20250429
  Receipt Date: 20250429
  Transmission Date: 20250716
  Serious: Yes (Other)
  Sender: RANBAXY
  Company Number: CO-SUN PHARMACEUTICAL INDUSTRIES LTD-2025R1-505152

PATIENT
  Age: 55 Year
  Sex: Female

DRUGS (5)
  1. CARBIDOPA\LEVODOPA [Suspect]
     Active Substance: CARBIDOPA\LEVODOPA
     Indication: Parkinson^s disease
     Route: 065
  2. PRAMIPEXOLE [Suspect]
     Active Substance: PRAMIPEXOLE
     Indication: Parkinson^s disease
     Route: 065
  3. SELEGILINE [Concomitant]
     Active Substance: SELEGILINE
     Indication: Parkinson^s disease
     Route: 065
  4. RASAGILINE [Concomitant]
     Active Substance: RASAGILINE
     Indication: Parkinson^s disease
     Route: 065
  5. ROTIGOTINE [Concomitant]
     Active Substance: ROTIGOTINE
     Indication: Parkinson^s disease
     Route: 065

REACTIONS (2)
  - Disease progression [Unknown]
  - Hyperphagia [Unknown]
